FAERS Safety Report 13243559 (Version 1)
Quarter: 2017Q1

REPORT INFORMATION
  Report Type: Spontaneous
  Country: US (occurrence: US)
  Receive Date: 20170217
  Receipt Date: 20170217
  Transmission Date: 20170428
  Serious: No
  Sender: FDA-Public Use
  Company Number: US-BAUSCH-BL-2016-027652

PATIENT
  Age: 79 Year
  Sex: Female

DRUGS (1)
  1. DILTIAZEM CD [Suspect]
     Active Substance: DILTIAZEM
     Indication: HYPERTENSION
     Route: 048

REACTIONS (1)
  - Hallucination [Recovered/Resolved]
